FAERS Safety Report 18417072 (Version 2)
Quarter: 2020Q4

REPORT INFORMATION
  Report Type: Spontaneous
  Country: BE (occurrence: BE)
  Receive Date: 20201022
  Receipt Date: 20201028
  Transmission Date: 20210114
  Serious: Yes (Death, Life-Threatening, Hospitalization, Other)
  Sender: FDA-Public Use
  Company Number: BE-PFIZER INC-2020408803

PATIENT
  Age: 88 Year
  Sex: Female

DRUGS (3)
  1. METHYLPREDNISOLONE SODIUM SUCCINATE. [Suspect]
     Active Substance: METHYLPREDNISOLONE SODIUM SUCCINATE
     Dosage: 500 MG
     Route: 042
  2. HYDROCORTISONE. [Suspect]
     Active Substance: HYDROCORTISONE
     Indication: POLYMYALGIA RHEUMATICA
     Dosage: 8 MG, 1X/DAY
  3. DARBEPOETIN ALFA [Concomitant]
     Active Substance: DARBEPOETIN ALFA
     Dosage: UNK

REACTIONS (13)
  - Facial paralysis [Recovered/Resolved]
  - VIth nerve paralysis [Recovering/Resolving]
  - Otitis media [Recovered/Resolved]
  - Aspergillus infection [Recovered/Resolved]
  - IVth nerve paralysis [Recovering/Resolving]
  - Acute sinusitis [Recovered/Resolved]
  - IIIrd nerve paralysis [Recovered/Resolved]
  - Bone erosion [Recovering/Resolving]
  - Orbital apex syndrome [Recovering/Resolving]
  - Pulmonary embolism [Fatal]
  - Tympanic membrane perforation [Unknown]
  - Pneumonia staphylococcal [Not Recovered/Not Resolved]
  - Sinusitis [Recovered/Resolved]
